FAERS Safety Report 9783967 (Version 1)
Quarter: 2013Q4

REPORT INFORMATION
  Report Type: Spontaneous
  Country: CL (occurrence: CL)
  Receive Date: 20131226
  Receipt Date: 20131226
  Transmission Date: 20140711
  Serious: Yes (Other)
  Sender: FDA-Public Use
  Company Number: CL-PFIZER INC-2013364652

PATIENT
  Age: 85 Year
  Sex: Female

DRUGS (6)
  1. XALATAN [Suspect]
     Indication: GLAUCOMA
     Dosage: 1 DROP PER EYE AT NIGHT
     Route: 047
     Dates: start: 200312
  2. ALPRAZOLAM [Concomitant]
  3. PARACETAMOL [Concomitant]
  4. DORZOLAMIDE [Concomitant]
  5. LOSARTAN [Concomitant]
  6. CALDAR-D FORTE [Concomitant]

REACTIONS (1)
  - Hypoacusis [Not Recovered/Not Resolved]
